FAERS Safety Report 4907246-4 (Version None)
Quarter: 2006Q1

REPORT INFORMATION
  Report Type: 
  Country: None (occurrence: None)
  Receive Date: 20060207
  Receipt Date: 20060125
  Transmission Date: 20060701
  Serious: Yes (Hospitalization)
  Sender: FDA-Public Use
  Company Number: CLOF-10164

PATIENT
  Age: 50 Year
  Sex: Male

DRUGS (16)
  1. CLOFARABINE [Suspect]
     Indication: PANCREATIC CARCINOMA
     Dosage: 232 MG IV
     Route: 042
     Dates: start: 20051114
  2. PANCREASE [Concomitant]
  3. TEMAZEPAM [Concomitant]
  4. HUMALOG [Concomitant]
  5. PROFOX N/APAP [Concomitant]
  6. DURAGESIC-100 [Concomitant]
  7. CELEBREX [Concomitant]
  8. LORAZEPAM [Concomitant]
  9. DEXAMETHASONE SODIUM PHOSPHATE [Concomitant]
  10. BDGX [Concomitant]
  11. VIOKASE [Concomitant]
  12. MEGESTROL [Concomitant]
  13. MORPHINE [Concomitant]
  14. PROMETHAZINE [Concomitant]
  15. ZOFRAN [Concomitant]
  16. METOCLOPRAMIDE [Concomitant]

REACTIONS (6)
  - ABDOMINAL PAIN [None]
  - DEHYDRATION [None]
  - DIARRHOEA [None]
  - NAUSEA [None]
  - PAIN [None]
  - VOMITING [None]
